FAERS Safety Report 26064550 (Version 1)
Quarter: 2025Q4

REPORT INFORMATION
  Report Type: Spontaneous
  Country: US (occurrence: US)
  Receive Date: 20251119
  Receipt Date: 20251119
  Transmission Date: 20260117
  Serious: Yes (Hospitalization, Other)
  Sender: HIKMA
  Company Number: US-HIKMA PHARMACEUTICALS USA INC.-US-H14001-24-07540

PATIENT
  Age: 65 Year
  Sex: Female

DRUGS (22)
  1. DEXAMETHASONE [Suspect]
     Active Substance: DEXAMETHASONE
     Indication: Product used for unknown indication
     Dosage: 2 DOSAGE FORM
     Route: 048
  2. TRAMADOL [Suspect]
     Active Substance: TRAMADOL
     Indication: Bone pain
     Dosage: 50 MILLIGRAM, PRN
     Route: 048
  3. XOSPATA [Suspect]
     Active Substance: GILTERITINIB
     Indication: Acute myelomonocytic leukaemia
     Dosage: 40 MILLIGRAM, QD, 1-15 DAYS EVERY 28 DAYS
     Route: 048
     Dates: start: 20221213
  4. XOSPATA [Suspect]
     Active Substance: GILTERITINIB
     Dosage: 80 MILLIGRAM, QD
     Route: 048
  5. XOSPATA [Suspect]
     Active Substance: GILTERITINIB
     Dosage: 40 MILLIGRAM, QD, 1-15 DAYS EVERY 28 DAYS
     Route: 048
  6. XOSPATA [Suspect]
     Active Substance: GILTERITINIB
     Dosage: 80 MILLIGRAM, QD
     Route: 048
     Dates: start: 20230109
  7. XOSPATA [Suspect]
     Active Substance: GILTERITINIB
     Dosage: 40 MILLIGRAM, QD, 1-15 DAYS EVERY 28 DAYS
     Route: 048
  8. XOSPATA [Suspect]
     Active Substance: GILTERITINIB
     Dosage: 80 MILLIGRAM, QD
     Route: 048
  9. XOSPATA [Suspect]
     Active Substance: GILTERITINIB
     Dosage: 80 MILLIGRAM, QD
     Route: 048
  10. ACTOS [Concomitant]
     Active Substance: PIOGLITAZONE HYDROCHLORIDE
     Indication: Diabetes mellitus
     Dosage: 45 MILLIGRAM, QD
     Route: 048
  11. AMBIEN [Concomitant]
     Active Substance: ZOLPIDEM TARTRATE
     Indication: Insomnia
     Dosage: 10 MG, ONCE DAILY NIGHT
     Route: 048
  12. AZACITIDINE [Concomitant]
     Active Substance: AZACITIDINE
     Indication: Acute myeloid leukaemia
     Dosage: 140 MG, ONCE DAILY FOR 5 DAYS EVERY 6 WEEKS
     Route: 042
  13. AZACITIDINE [Concomitant]
     Active Substance: AZACITIDINE
     Dosage: 140 MG, ONCE DAILY FOR 5 DAYS EVERY 4 WEEKS
     Route: 042
  14. AZACITIDINE [Concomitant]
     Active Substance: AZACITIDINE
     Dosage: 140 MG, ONCE DAILY FOR 5 DAYS EVERY 5 WEEKS
     Route: 042
  15. CLARITIN [Concomitant]
     Active Substance: LORATADINE
     Indication: Hypersensitivity
     Dosage: 10 MG, ONCE DAILY YEARS AGO
  16. LEVOFLOXACIN [Concomitant]
     Active Substance: LEVOFLOXACIN
     Indication: Acute myeloid leukaemia
     Dosage: 500 MILLIGRAM, QD
     Route: 048
  17. LEVOTHYROXINE [Concomitant]
     Active Substance: LEVOTHYROXINE
     Indication: Hypothyroidism
     Dosage: 125 MICROGRAM, QD
     Route: 048
  18. LEXAPRO [Concomitant]
     Active Substance: ESCITALOPRAM OXALATE
     Indication: Depression
     Dosage: 10 MILLIGRAM, QD
     Route: 048
     Dates: start: 2007
  19. OMEPRAZOLE [Concomitant]
     Active Substance: OMEPRAZOLE
     Indication: Gastrooesophageal reflux disease
     Dosage: 40 MG, ONCE DAILY YEARS AGO
     Route: 048
  20. VALACYCLOVIR [Concomitant]
     Active Substance: VALACYCLOVIR HYDROCHLORIDE
     Indication: Acute myeloid leukaemia
     Dosage: 500 MILLIGRAM, QD
     Route: 048
  21. VENCLEXTA [Concomitant]
     Active Substance: VENETOCLAX
     Indication: Acute myeloid leukaemia
     Dosage: 50 MG, ONCE DAILY FOR 5 DAYS
     Route: 048
  22. XANAX [Concomitant]
     Active Substance: ALPRAZOLAM
     Indication: Anxiety
     Dosage: 0.25 MG, EVERY 6 HOURS AS NEEDED
     Route: 065

REACTIONS (14)
  - COVID-19 [Recovered/Resolved]
  - Sepsis [Recovered/Resolved]
  - Escherichia infection [Recovered/Resolved]
  - Blood glucose increased [Not Recovered/Not Resolved]
  - Asthenia [Unknown]
  - Pyrexia [Unknown]
  - Gait inability [Unknown]
  - Haemoglobin decreased [Unknown]
  - White blood cell count decreased [Unknown]
  - Constipation [Not Recovered/Not Resolved]
  - Diarrhoea [Recovered/Resolved]
  - Nausea [Not Recovered/Not Resolved]
  - Pain [Unknown]
  - Depressed mood [Unknown]

NARRATIVE: CASE EVENT DATE: 20230817
